FAERS Safety Report 12257310 (Version 1)
Quarter: 2016Q2

REPORT INFORMATION
  Report Type: Spontaneous
  Country: US (occurrence: None)
  Receive Date: 20160411
  Receipt Date: 20160411
  Transmission Date: 20160815
  Serious: No
  Sender: FDA-Public Use
  Company Number: None

PATIENT
  Age: 55 Year
  Sex: Female
  Weight: 147.87 kg

DRUGS (8)
  1. SULFAMETHOXAZOLE - TMP DS TABLET [Suspect]
     Active Substance: SULFAMETHOXAZOLE\TRIMETHOPRIM
     Indication: CYSTITIS
     Dosage: 28 PILLS 2 TAB EVERY 12 HOURS BY MOUTH
     Route: 048
     Dates: start: 20160309, end: 20160314
  2. HUMALOG [Concomitant]
     Active Substance: INSULIN LISPRO
  3. TRAMADOL. [Concomitant]
     Active Substance: TRAMADOL
  4. SULFAMETHOXAZOLE - TMP DS TABLET [Suspect]
     Active Substance: SULFAMETHOXAZOLE\TRIMETHOPRIM
     Indication: RESPIRATORY TRACT INFECTION
     Dosage: 28 PILLS 2 TAB EVERY 12 HOURS BY MOUTH
     Route: 048
     Dates: start: 20160309, end: 20160314
  5. ALBUTEROL. [Concomitant]
     Active Substance: ALBUTEROL
  6. 81 ASPIRIN [Concomitant]
  7. METFORMIN [Concomitant]
     Active Substance: METFORMIN HYDROCHLORIDE
  8. RANITIDINE. [Concomitant]
     Active Substance: RANITIDINE

REACTIONS (5)
  - Blister [None]
  - Blood glucose decreased [None]
  - Abdominal pain upper [None]
  - Diarrhoea [None]
  - Musculoskeletal stiffness [None]

NARRATIVE: CASE EVENT DATE: 20160314
